FAERS Safety Report 6661433-6 (Version None)
Quarter: 2010Q1

REPORT INFORMATION
  Report Type: 
  Country: None (occurrence: None)
  Receive Date: 20100331
  Receipt Date: 20100320
  Transmission Date: 20100710
  Serious: Yes (Death, Life-Threatening, Other)
  Sender: FDA-Public Use
  Company Number: PHHY2010DE18184

PATIENT
  Sex: Female
  Weight: 85 kg

DRUGS (14)
  1. ALISKIREN ALI+ [Suspect]
     Indication: HYPERTENSION
     Dosage: 150 MG, QD
     Dates: start: 20080904, end: 20081027
  2. ALISKIREN ALI+ [Suspect]
     Dosage: 300 MG, QD
     Dates: start: 20081028, end: 20090313
  3. DIOVAN HCT [Suspect]
     Indication: HYPERTENSION
     Dosage: 1 DF, QD
     Dates: start: 20080812, end: 20090313
  4. DILTAHEXAL [Concomitant]
     Indication: HYPERTENSION
     Dosage: 180 MG, QD
     Route: 048
     Dates: start: 20020601, end: 20090313
  5. OMEPRAZOLE [Concomitant]
     Dosage: 20 MG, QD
     Dates: start: 20020601, end: 20090313
  6. TORASEMIDE [Concomitant]
     Dosage: 10 MG, QD
     Dates: start: 20020601, end: 20090313
  7. CLONIDINE [Concomitant]
     Dosage: 0.25 MG, QD
     Dates: start: 20020601, end: 20090313
  8. PROPRA-RATIO [Concomitant]
     Dosage: 25 MG, QD
     Dates: start: 20020601, end: 20090313
  9. BROMAZEP [Concomitant]
     Dosage: 6 MG, QD
     Dates: start: 20020601, end: 20090313
  10. INSULIN [Concomitant]
     Indication: DIABETES MELLITUS
     Dosage: UNK
  11. CALCIUM CHANNEL BLOCKERS [Concomitant]
  12. BETA BLOCKING AGENTS [Concomitant]
     Dosage: UNK
     Dates: start: 20090304
  13. ANTIADRENERGIC AGENTS NOS [Concomitant]
     Dosage: UNK
     Dates: start: 20090304
  14. HMG COA REDUCTASE INHIBITORS [Concomitant]

REACTIONS (6)
  - DYSPNOEA EXERTIONAL [None]
  - HAEMOGLOBIN DECREASED [None]
  - HEART RATE INCREASED [None]
  - HYPERTENSION [None]
  - LEFT VENTRICULAR HYPERTROPHY [None]
  - MYOCARDIAL INFARCTION [None]
